FAERS Safety Report 5531116-4 (Version None)
Quarter: 2007Q4

REPORT INFORMATION
  Report Type: 
  Country: None (occurrence: None)
  Receive Date: 20071130
  Receipt Date: 20071121
  Transmission Date: 20080405
  Serious: Yes (Other)
  Sender: FDA-Public Use
  Company Number: CA-BOEHRINGER INGELHEIM PHARMACEUTICALS, INC.-2007-CN-00800CN

PATIENT
  Sex: Female

DRUGS (6)
  1. MIRAPEX [Suspect]
     Indication: SLEEP DISORDER
     Route: 048
     Dates: start: 20070315
  2. MIRAPEX [Suspect]
     Indication: RESTLESS LEGS SYNDROME
  3. CELEXA [Concomitant]
     Dates: start: 20070201
  4. ZOPICLONE [Concomitant]
     Dates: start: 20070115
  5. ACEBUTOLOL [Concomitant]
  6. CLONAZEPAM [Concomitant]

REACTIONS (6)
  - BLOOD ALCOHOL INCREASED [None]
  - ECONOMIC PROBLEM [None]
  - FEMALE ORGASMIC DISORDER [None]
  - HYPOMANIA [None]
  - LIBIDO INCREASED [None]
  - ROAD TRAFFIC ACCIDENT [None]
